FAERS Safety Report 20510546 (Version 1)
Quarter: 2022Q1

REPORT INFORMATION
  Report Type: Spontaneous
  Country: CH (occurrence: None)
  Receive Date: 20220224
  Receipt Date: 20220224
  Transmission Date: 20220424
  Serious: No
  Sender: FDA-Public Use
  Company Number: CH-ROCHE-3028576

PATIENT
  Age: 59 Year
  Sex: Female
  Weight: 62 kg

DRUGS (5)
  1. OCREVUS [Suspect]
     Active Substance: OCRELIZUMAB
     Indication: Relapsing-remitting multiple sclerosis
     Dosage: 21/DEC/2017
     Route: 042
     Dates: start: 20171207
  2. OCREVUS [Suspect]
     Active Substance: OCRELIZUMAB
     Dosage: 18/DEC/2018, 09/JUL/2019, 07/JAN/2020, 30/JUN/2020, 16/DEC/2020, 29/JUN/2021, 21/DEC/2021.
     Route: 042
     Dates: start: 20180612
  3. DALFAMPRIDINE [Concomitant]
     Active Substance: DALFAMPRIDINE
     Route: 048
  4. TIZANIDINE [Concomitant]
     Active Substance: TIZANIDINE
     Route: 048
  5. METHYLPHENIDATE [Concomitant]
     Active Substance: METHYLPHENIDATE
     Route: 048

REACTIONS (1)
  - COVID-19 [Recovered/Resolved]

NARRATIVE: CASE EVENT DATE: 20220117
